FAERS Safety Report 18539815 (Version 1)
Quarter: 2020Q4

REPORT INFORMATION
  Report Type: Spontaneous
  Country: US (occurrence: US)
  Receive Date: 20201124
  Receipt Date: 20201124
  Transmission Date: 20210114
  Serious: No
  Sender: FDA-Public Use
  Company Number: US-009507513-2011USA010623

PATIENT
  Age: 68 Year
  Sex: Female

DRUGS (3)
  1. COZAAR [Suspect]
     Active Substance: LOSARTAN POTASSIUM
     Dosage: ONCE DAILY (QD)
     Route: 048
     Dates: start: 20201109
  2. COZAAR [Suspect]
     Active Substance: LOSARTAN POTASSIUM
     Indication: HYPERTENSION
     Dosage: UNK
     Route: 048
     Dates: start: 201811
  3. COZAAR [Suspect]
     Active Substance: LOSARTAN POTASSIUM
     Dosage: 1 TABLETS PER DAY
     Route: 048
     Dates: start: 20201116

REACTIONS (6)
  - No adverse event [Unknown]
  - Product taste abnormal [Unknown]
  - Poor quality product administered [Unknown]
  - Product odour abnormal [Unknown]
  - Product taste abnormal [Unknown]
  - Product odour abnormal [Unknown]

NARRATIVE: CASE EVENT DATE: 202011
